FAERS Safety Report 6392197-1 (Version None)
Quarter: 2009Q4

REPORT INFORMATION
  Report Type: 
  Country: None (occurrence: None)
  Receive Date: 20091005
  Receipt Date: 20090925
  Transmission Date: 20100525
  Serious: Yes (Other)
  Sender: FDA-Public Use
  Company Number: 2009SP018798

PATIENT
  Sex: Female

DRUGS (3)
  1. TEMODAL [Suspect]
     Indication: DRUG USE FOR UNKNOWN INDICATION
     Dates: end: 20090725
  2. AUGMENTIN [Suspect]
     Indication: DRUG USE FOR UNKNOWN INDICATION
  3. BACTRIM [Concomitant]

REACTIONS (3)
  - EPISTAXIS [None]
  - MYELOID MATURATION ARREST [None]
  - PANCYTOPENIA [None]
